FAERS Safety Report 15260260 (Version 1)
Quarter: 2018Q3

REPORT INFORMATION
  Report Type: Spontaneous
  Country: US (occurrence: US)
  Receive Date: 20180809
  Receipt Date: 20180809
  Transmission Date: 20181010
  Serious: No
  Sender: FDA-Public Use
  Company Number: US-SA-2018SA216544

PATIENT
  Sex: Female

DRUGS (2)
  1. CORTIZONE 10 [Suspect]
     Active Substance: HYDROCORTISONE
     Indication: PRURITUS
     Dosage: UNK
     Dates: start: 20180801
  2. CORTIZONE 10 [Suspect]
     Active Substance: HYDROCORTISONE
     Indication: SKIN IRRITATION

REACTIONS (1)
  - Drug ineffective [Unknown]

NARRATIVE: CASE EVENT DATE: 20180801
